FAERS Safety Report 10348243 (Version 2)
Quarter: 2014Q3

REPORT INFORMATION
  Report Type: Report from Study
  Country: JP (occurrence: JP)
  Receive Date: 20140729
  Receipt Date: 20140729
  Transmission Date: 20150326
  Serious: Yes (Other)
  Sender: FDA-Public Use
  Company Number: JP-GLAXOSMITHKLINE-B0649278A

PATIENT
  Sex: Female

DRUGS (2)
  1. TYKERB [Suspect]
     Active Substance: LAPATINIB DITOSYLATE
     Indication: BREAST CANCER METASTATIC
     Route: 048
     Dates: end: 20100422
  2. XELODA [Concomitant]
     Active Substance: CAPECITABINE
     Route: 048

REACTIONS (2)
  - Exposure during pregnancy [Unknown]
  - Electrocardiogram QT prolonged [Not Recovered/Not Resolved]
